FAERS Safety Report 7331267-8 (Version None)
Quarter: 2011Q1

REPORT INFORMATION
  Report Type: 
  Country: None (occurrence: None)
  Receive Date: 20110228
  Receipt Date: 20110228
  Transmission Date: 20110831
  Serious: Yes (Other)
  Sender: FDA-Public Use
  Company Number: None

PATIENT
  Age: 49 Year
  Sex: Female
  Weight: 74.8435 kg

DRUGS (1)
  1. FLUOXETINE 20 MG LILLY [Suspect]
     Dosage: 20MG 1 DAY

REACTIONS (6)
  - SOCIAL AVOIDANT BEHAVIOUR [None]
  - EMOTIONAL DISORDER [None]
  - ABNORMAL BEHAVIOUR [None]
  - DRUG DEPENDENCE [None]
  - DIVORCED [None]
  - PRODUCT LABEL ISSUE [None]
